FAERS Safety Report 8550728-7 (Version None)
Quarter: 2012Q3

REPORT INFORMATION
  Report Type: 
  Country: None (occurrence: None)
  Receive Date: 20120730
  Receipt Date: 20120725
  Transmission Date: 20120928
  Serious: Yes (Other)
  Sender: FDA-Public Use
  Company Number: BR-PFIZER INC-2012181146

PATIENT
  Age: 62 Year
  Sex: Female

DRUGS (5)
  1. ZOLOFT [Suspect]
     Indication: ANTIDEPRESSANT THERAPY
     Dosage: UNK
     Dates: start: 20100724
  2. XALATAN [Suspect]
     Indication: GLAUCOMA
     Dosage: 3 UG, ONCE (NOT SPECIFIED)
     Route: 047
     Dates: start: 20070221
  3. MICARDIS [Concomitant]
     Indication: HYPERTENSION
     Dosage: UNK
     Dates: start: 20020724
  4. NEXIUM [Concomitant]
     Indication: GASTRITIS
     Dosage: UNK
     Dates: start: 20060724
  5. SCAFLAN [Concomitant]
     Indication: ANTIDEPRESSANT THERAPY
     Dosage: UNK
     Dates: start: 20100724

REACTIONS (2)
  - HYPOAESTHESIA [None]
  - INTERVERTEBRAL DISC PROTRUSION [None]
